FAERS Safety Report 24322322 (Version 6)
Quarter: 2025Q2

REPORT INFORMATION
  Report Type: Report from Study
  Country: US (occurrence: US)
  Receive Date: 20240916
  Receipt Date: 20250607
  Transmission Date: 20250717
  Serious: Yes (Hospitalization, Other)
  Sender: TAKEDA
  Company Number: US-TAKEDA-2022TUS029233

PATIENT
  Age: 63 Year
  Sex: Female
  Weight: 68 kg

DRUGS (27)
  1. HUMAN IMMUNOGLOBULIN G [Suspect]
     Active Substance: HUMAN IMMUNOGLOBULIN G
     Indication: Immunodeficiency common variable
     Dosage: 8 GRAM, 1/WEEK
  2. LOSARTAN AND HYDROCHLOROTHIAZIDE [Concomitant]
     Active Substance: HYDROCHLOROTHIAZIDE\LOSARTAN POTASSIUM
  3. FOLIC ACID [Concomitant]
     Active Substance: FOLIC ACID
  4. TACROLIMUS [Concomitant]
     Active Substance: TACROLIMUS
  5. MAGNESIUM [Concomitant]
     Active Substance: MAGNESIUM
  6. PROTONIX [Concomitant]
     Active Substance: PANTOPRAZOLE SODIUM
  7. CALCIUM DISODIUM VERSENATE [Concomitant]
     Active Substance: EDETATE CALCIUM DISODIUM
  8. LEVOFLOXACIN [Concomitant]
     Active Substance: LEVOFLOXACIN
  9. HYDROCHLOROTHIAZIDE\METOPROLOL [Concomitant]
     Active Substance: HYDROCHLOROTHIAZIDE\METOPROLOL
  10. MYFORTIC [Concomitant]
     Active Substance: MYCOPHENOLATE SODIUM
  11. ROPINIROLE HYDROCHLORIDE [Concomitant]
     Active Substance: ROPINIROLE HYDROCHLORIDE
  12. ASPIRIN [Concomitant]
     Active Substance: ASPIRIN
  13. VITAMIN D3 [Concomitant]
     Active Substance: CHOLECALCIFEROL
  14. PREDNISONE [Concomitant]
     Active Substance: PREDNISONE
  15. AZITHROMYCIN [Concomitant]
     Active Substance: AZITHROMYCIN
  16. EPINEPHRINE [Concomitant]
     Active Substance: EPINEPHRINE
  17. BACTRIM [Concomitant]
     Active Substance: SULFAMETHOXAZOLE\TRIMETHOPRIM
  18. DIPHENHYDRAMINE [Concomitant]
     Active Substance: DIPHENHYDRAMINE
  19. ACETAMINOPHEN [Concomitant]
     Active Substance: ACETAMINOPHEN
  20. Lmx [Concomitant]
  21. LIDOCAINE [Concomitant]
     Active Substance: LIDOCAINE
  22. DIPHENHYDRAMINE HYDROCHLORIDE [Concomitant]
     Active Substance: DIPHENHYDRAMINE HYDROCHLORIDE
  23. ZINC SULFATE [Concomitant]
     Active Substance: ZINC SULFATE
  24. LEXAPRO [Concomitant]
     Active Substance: ESCITALOPRAM OXALATE
  25. DAPSONE [Concomitant]
     Active Substance: DAPSONE
  26. VALACYCLOVIR [Concomitant]
     Active Substance: VALACYCLOVIR HYDROCHLORIDE
  27. LACTOBACILLUS ACIDOPHILUS [Concomitant]
     Active Substance: LACTOBACILLUS ACIDOPHILUS

REACTIONS (13)
  - Blood potassium increased [Unknown]
  - COVID-19 [Unknown]
  - Chronic kidney disease [Unknown]
  - Dehydration [Unknown]
  - Weight decreased [Unknown]
  - Fall [Unknown]
  - Gastroenteritis viral [Unknown]
  - Bronchitis [Unknown]
  - Urinary tract infection [Unknown]
  - Product dose omission issue [Unknown]
  - Viral infection [Unknown]
  - Sinusitis [Unknown]
  - Arthralgia [Unknown]

NARRATIVE: CASE EVENT DATE: 20230816
